FAERS Safety Report 5216620-0 (Version None)
Quarter: 2007Q1

REPORT INFORMATION
  Report Type: 
  Country: None (occurrence: None)
  Receive Date: 20061130
  Receipt Date: 20060807
  Transmission Date: 20070707
  Serious: Yes (Other)
  Sender: FDA-Public Use
  Company Number: US200608002138

PATIENT
  Age: 26 Year
  Sex: Male

DRUGS (3)
  1. ZYPREXA [Suspect]
     Indication: DEPRESSION
     Dosage: 20 MG, DAILY (1/D); ORAL; 10 MG, DAILY (1/D); ORAL
     Route: 048
     Dates: start: 19990604
  2. ZYPREXA [Suspect]
     Indication: DEPRESSION
     Dosage: 20 MG, DAILY (1/D); ORAL; 10 MG, DAILY (1/D); ORAL
     Route: 048
     Dates: start: 20020505
  3. WELLBUTRIN [Concomitant]

REACTIONS (3)
  - BLOOD CHOLESTEROL ABNORMAL [None]
  - DIABETES MELLITUS [None]
  - HYPERTENSION [None]
